FAERS Safety Report 15276109 (Version 1)
Quarter: 2018Q3

REPORT INFORMATION
  Report Type: Spontaneous
  Country: FR (occurrence: FR)
  Receive Date: 20180814
  Receipt Date: 20180814
  Transmission Date: 20181010
  Serious: Yes (Hospitalization, Other)
  Sender: FDA-Public Use
  Company Number: PHHY2018FR069653

PATIENT
  Age: 60 Year
  Sex: Male

DRUGS (27)
  1. PANTOPRAZOLE [Suspect]
     Active Substance: PANTOPRAZOLE
     Dosage: 20 MG, QD
     Route: 048
     Dates: start: 20180519
  2. TRISENOX [Suspect]
     Active Substance: ARSENIC TRIOXIDE
     Dosage: 12.75 MG, CYCLIC
     Route: 042
     Dates: start: 20180420
  3. BACTRIM [Suspect]
     Active Substance: SULFAMETHOXAZOLE\TRIMETHOPRIM
     Indication: PRODUCT USED FOR UNKNOWN INDICATION
     Dosage: UNK (800MG/160MG FOR 7 DAYS)
     Route: 048
  4. PANTOPRAZOLE [Suspect]
     Active Substance: PANTOPRAZOLE
     Indication: ABDOMINAL PAIN UPPER
     Dosage: 20 MG, QD
     Route: 048
     Dates: start: 20180424
  5. CETIRIZINE DIHYDROCHLORIDE [Suspect]
     Active Substance: CETIRIZINE HYDROCHLORIDE
     Indication: URTICARIA
     Dosage: 10 MG, QD
     Route: 048
     Dates: start: 20180414
  6. AMLODIPINE [Suspect]
     Active Substance: AMLODIPINE BESYLATE
     Indication: HYPERTENSION
     Dosage: 10 MG, QD
     Route: 048
     Dates: start: 20180509
  7. TRISENOX [Suspect]
     Active Substance: ARSENIC TRIOXIDE
     Dosage: 12.75 MG, CYCLIC
     Route: 042
     Dates: start: 20180522
  8. ZELITREX [Suspect]
     Active Substance: VALACYCLOVIR HYDROCHLORIDE
     Indication: ANTIVIRAL PROPHYLAXIS
     Dosage: 500 MG, QD
     Route: 048
     Dates: start: 20180411
  9. HYDREA [Concomitant]
     Active Substance: HYDROXYUREA
     Dosage: UNK (2?2?2)
     Route: 065
     Dates: start: 20180523
  10. LINEZOLID. [Suspect]
     Active Substance: LINEZOLID
     Indication: FEBRILE BONE MARROW APLASIA
     Dosage: 600 MG, Q12H
     Route: 042
     Dates: start: 20180503
  11. ALPRAZOLAM. [Suspect]
     Active Substance: ALPRAZOLAM
     Indication: ANXIETY
     Dosage: 0.75 MG, QD
     Route: 048
     Dates: start: 20180512
  12. CETIRIZINE DIHYDROCHLORIDE [Suspect]
     Active Substance: CETIRIZINE HYDROCHLORIDE
     Dosage: 10 MG, QD
     Route: 048
     Dates: start: 20180423
  13. FLUCONAZOLE. [Suspect]
     Active Substance: FLUCONAZOLE
     Indication: PRODUCT USED FOR UNKNOWN INDICATION
     Dosage: 400 MG, UNK
     Route: 042
  14. VESANOID [Suspect]
     Active Substance: TRETINOIN
     Dosage: 90 MG, QD
     Route: 048
     Dates: start: 20180509
  15. HYDREA [Concomitant]
     Active Substance: HYDROXYUREA
     Indication: PRODUCT USED FOR UNKNOWN INDICATION
     Dosage: UNK (1?1?1)
     Route: 065
     Dates: start: 20180421
  16. LINEZOLID. [Suspect]
     Active Substance: LINEZOLID
     Dosage: 600 MG, Q12H
     Route: 042
     Dates: start: 20180517
  17. TRISENOX [Suspect]
     Active Substance: ARSENIC TRIOXIDE
     Dosage: 12.75 MG, CYCLIC
     Route: 042
     Dates: start: 20180518
  18. TAZOCILLINE [Suspect]
     Active Substance: PIPERACILLIN SODIUM\TAZOBACTAM SODIUM
     Indication: FEBRILE BONE MARROW APLASIA
     Dosage: 16 G, QD
     Route: 042
     Dates: start: 20180413
  19. VESANOID [Suspect]
     Active Substance: TRETINOIN
     Dosage: 90 MG, QD
     Route: 048
     Dates: start: 20180420
  20. TRISENOX [Suspect]
     Active Substance: ARSENIC TRIOXIDE
     Indication: ACUTE MYELOID LEUKAEMIA
     Dosage: 12.75 MG, CYCLIC
     Route: 042
     Dates: start: 20180411
  21. VESANOID [Suspect]
     Active Substance: TRETINOIN
     Indication: ACUTE MYELOID LEUKAEMIA
     Dosage: 90 MG, QD
     Route: 048
     Dates: start: 20180411
  22. TRISENOX [Suspect]
     Active Substance: ARSENIC TRIOXIDE
     Dosage: 12.75 MG, CYCLIC
     Route: 042
     Dates: start: 20180511
  23. TRISENOX [Suspect]
     Active Substance: ARSENIC TRIOXIDE
     Dosage: 12.75 MG, CYCLIC
     Route: 042
     Dates: start: 20180515
  24. TRISENOX [Suspect]
     Active Substance: ARSENIC TRIOXIDE
     Dosage: 12.75 MG, CYCLIC
     Route: 042
     Dates: start: 20180521
  25. CANCIDAS [Suspect]
     Active Substance: CASPOFUNGIN ACETATE
     Indication: FEBRILE BONE MARROW APLASIA
     Dosage: 70 MG, QD
     Route: 042
     Dates: start: 20180503
  26. ZOLPIDEM [Concomitant]
     Active Substance: ZOLPIDEM\ZOLPIDEM TARTRATE
     Indication: PRODUCT USED FOR UNKNOWN INDICATION
     Dosage: 5 MG, UNK
     Route: 065
  27. HYDREA [Concomitant]
     Active Substance: HYDROXYUREA
     Dosage: UNK (2?2?2)
     Route: 065
     Dates: start: 20180527

REACTIONS (6)
  - Hypokalaemia [Unknown]
  - Hypomagnesaemia [Unknown]
  - Urticaria [Unknown]
  - Acute promyelocytic leukaemia differentiation syndrome [Unknown]
  - Hyperleukocytosis [Unknown]
  - Electrocardiogram QT prolonged [Recovered/Resolved]

NARRATIVE: CASE EVENT DATE: 20180420
